FAERS Safety Report 13036347 (Version 1)
Quarter: 2016Q4

REPORT INFORMATION
  Report Type: Spontaneous
  Country: GB (occurrence: GB)
  Receive Date: 20161216
  Receipt Date: 20161216
  Transmission Date: 20170207
  Serious: Yes (Other)
  Sender: FDA-Public Use
  Company Number: GB-TEVA-719704ACC

PATIENT
  Age: 64 Year
  Sex: Male
  Weight: 65 kg

DRUGS (16)
  1. GABAPENTIN. [Suspect]
     Active Substance: GABAPENTIN
     Dates: start: 20161020
  2. PREGABALIN. [Concomitant]
     Active Substance: PREGABALIN
     Dosage: USE AS DIRECTED
     Dates: start: 20161109
  3. SENNA [Concomitant]
     Active Substance: SENNA LEAF\SENNOSIDES\SENNOSIDES A AND B
     Indication: CONSTIPATION
     Dosage: 1-2 TO BE TAKEN EACH NIGHT
     Dates: start: 20161031
  4. TRAMADOL. [Concomitant]
     Active Substance: TRAMADOL
     Dosage: 1-2 UP TO FOUR TIMES DAILY (MAX 8...
     Dates: start: 20160704
  5. BISOPROLOL [Concomitant]
     Active Substance: BISOPROLOL
     Dosage: 1 DOSAGE FORMS DAILY; CAN TAKE AN ADDITIONAL ...
     Dates: start: 20110128, end: 20161004
  6. LIDOCAINE. [Concomitant]
     Active Substance: LIDOCAINE
     Dosage: APPLY TO AFFECTED AREA FOR 12 HOURS REMOVE FOR 12 HOURS
     Dates: start: 20161114
  7. AMITRIPTYLINE HYDROCHLORIDE. [Concomitant]
     Active Substance: AMITRIPTYLINE HYDROCHLORIDE
     Dosage: 1-2 AT NIGHT
     Dates: start: 20160920
  8. ATORVASTATIN [Concomitant]
     Active Substance: ATORVASTATIN
     Dosage: 1 DOSAGE FORMS DAILY;
     Dates: start: 20160114
  9. ORAMORPH [Concomitant]
     Active Substance: MORPHINE SULFATE
     Dates: start: 20160927
  10. FERROUS SULFATE. [Concomitant]
     Active Substance: FERROUS SULFATE
     Dosage: 3 DOSAGE FORMS DAILY;
     Dates: start: 20160519
  11. PREDNISOLONE. [Concomitant]
     Active Substance: PREDNISOLONE
     Dosage: 4 DAILY FOR 1 DAY, 3 DAILY FOR 1 DAY THEN 2 DAILY
     Dates: start: 20160927
  12. ZOMORPH [Concomitant]
     Active Substance: MORPHINE SULFATE
     Dosage: 8 DOSAGE FORMS DAILY;
     Dates: start: 20161018
  13. COCODAMOL [Concomitant]
     Active Substance: ACETAMINOPHEN\CODEINE PHOSPHATE
     Dosage: 1-2  TO BE TAKEN 4 TIMES DAILY.
     Dates: start: 20150225, end: 20161018
  14. XARELTO [Concomitant]
     Active Substance: RIVAROXABAN
     Dosage: 1 DOSAGE FORMS DAILY;
     Dates: start: 20160107
  15. METOCLOPRAMIDE. [Concomitant]
     Active Substance: METOCLOPRAMIDE
     Dosage: UP TO 3 TIMES A DAY
     Dates: start: 20160513
  16. ZOLADEX [Concomitant]
     Active Substance: GOSERELIN ACETATE
     Dosage: USE AS DIRECTED BY UROLOGY. NEXT INJECTION 28/9...
     Dates: start: 20110128

REACTIONS (1)
  - Muscle spasms [Recovered/Resolved]

NARRATIVE: CASE EVENT DATE: 20161125
